FAERS Safety Report 8406755-3 (Version None)
Quarter: 2012Q2

REPORT INFORMATION
  Report Type: 
  Country: None (occurrence: None)
  Receive Date: 20120604
  Receipt Date: 20120529
  Transmission Date: 20120825
  Serious: Yes (Hospitalization)
  Sender: FDA-Public Use
  Company Number: SG-B.I. PHARMACEUTICALS,INC./RIDGEFIELD-2012-CS-00761MD

PATIENT
  Age: 66 Year
  Sex: Female

DRUGS (4)
  1. AGGRENOX [Suspect]
     Indication: CEREBROVASCULAR ACCIDENT PROPHYLAXIS
     Dosage: 250 MG
     Route: 048
     Dates: start: 20060404
  2. MICARDIS [Suspect]
     Indication: CEREBROVASCULAR ACCIDENT PROPHYLAXIS
     Dosage: 80 MG
     Route: 048
     Dates: start: 20060404
  3. ENALAPRIL MALEATE [Suspect]
     Indication: BLOOD PRESSURE INCREASED
     Dosage: 2.5 MG
     Route: 048
     Dates: start: 20060308
  4. NIFEDIPINE [Suspect]
     Indication: BLOOD PRESSURE INCREASED
     Dosage: 30 MG
     Route: 048
     Dates: start: 20060308, end: 20060527

REACTIONS (1)
  - ORTHOSTATIC HYPOTENSION [None]
